FAERS Safety Report 5863663-X (Version None)
Quarter: 2008Q3

REPORT INFORMATION
  Report Type: 
  Country: None (occurrence: None)
  Receive Date: 20080828
  Receipt Date: 20080818
  Transmission Date: 20090109
  Serious: Yes (Death)
  Sender: FDA-Public Use
  Company Number: JP-PFIZER INC-2008067167

PATIENT
  Age: 72 Year
  Sex: Female

DRUGS (1)
  1. SU-011,248 [Suspect]
     Indication: RENAL CELL CARCINOMA
     Dosage: DAILY DOSE:50MG
     Route: 048
     Dates: start: 20080630, end: 20080713

REACTIONS (1)
  - DEATH [None]
